FAERS Safety Report 18035128 (Version 4)
Quarter: 2021Q2

REPORT INFORMATION
  Report Type: Report from Study
  Country: None (occurrence: US)
  Receive Date: 20200717
  Receipt Date: 20210512
  Transmission Date: 20210717
  Serious: Yes (Other)
  Sender: FDA-Public Use
  Company Number: US-ABBVIE-20K-163-3438046-00

PATIENT
  Age: 64 Year
  Sex: Male

DRUGS (2)
  1. HUMIRA [Suspect]
     Active Substance: ADALIMUMAB
     Indication: PSORIATIC ARTHROPATHY
     Route: 058
     Dates: start: 20200407
  2. HUMIRA [Suspect]
     Active Substance: ADALIMUMAB
     Indication: PSORIASIS

REACTIONS (20)
  - Joint range of motion decreased [Unknown]
  - Fatigue [Recovered/Resolved]
  - Somnolence [Not Recovered/Not Resolved]
  - Arthralgia [Recovering/Resolving]
  - Hypoaesthesia [Recovered/Resolved]
  - Mobility decreased [Recovering/Resolving]
  - Vision blurred [Recovered/Resolved]
  - Pruritus [Unknown]
  - Paraesthesia [Recovered/Resolved]
  - Peripheral swelling [Recovering/Resolving]
  - Musculoskeletal stiffness [Unknown]
  - Balance disorder [Unknown]
  - Headache [Unknown]
  - Rib fracture [Unknown]
  - Cataract operation complication [Recovered/Resolved]
  - Cellulitis [Not Recovered/Not Resolved]
  - Cataract [Unknown]
  - Hypermobility syndrome [Recovering/Resolving]
  - Skin plaque [Recovered/Resolved]
  - Pain [Recovering/Resolving]

NARRATIVE: CASE EVENT DATE: 2020
